FAERS Safety Report 20854963 (Version 2)
Quarter: 2022Q2

REPORT INFORMATION
  Report Type: Spontaneous
  Country: IT (occurrence: IT)
  Receive Date: 20220520
  Receipt Date: 20220630
  Transmission Date: 20220721
  Serious: Yes (Hospitalization)
  Sender: FDA-Public Use
  Company Number: None

PATIENT
  Age: 57 Year
  Sex: Male

DRUGS (5)
  1. ERBITUX [Suspect]
     Active Substance: CETUXIMAB
     Indication: Off label use
     Dosage: 840 MG, UNK
     Route: 042
     Dates: start: 20220429, end: 20220429
  2. NEBIVOLOL [Concomitant]
     Active Substance: NEBIVOLOL
     Indication: Hypertension
     Dosage: 5 MG, DAILY
     Route: 048
  3. PREDNISONE [Concomitant]
     Active Substance: PREDNISONE
     Indication: Anaphylaxis prophylaxis
     Dosage: 25 MG, CYCLICAL
     Route: 048
     Dates: start: 20220429, end: 20220429
  4. DEXAMETHASONE [Concomitant]
     Active Substance: DEXAMETHASONE
     Indication: Anaphylaxis prophylaxis
     Dosage: 12 MG, CYCLICAL
     Route: 042
     Dates: start: 20220429, end: 20220429
  5. CHLORPHENIRAMINE MALEATE [Concomitant]
     Active Substance: CHLORPHENIRAMINE MALEATE
     Indication: Antiallergic therapy
     Dosage: 10 MG, CYCLICAL
     Route: 042
     Dates: start: 20220429, end: 20220429

REACTIONS (10)
  - Anal incontinence [Recovered/Resolved]
  - Sensory disturbance [Recovered/Resolved]
  - Speech disorder [Recovered/Resolved]
  - Hyperhidrosis [Recovered/Resolved]
  - Flushing [Recovered/Resolved]
  - Dyspnoea at rest [Recovered/Resolved]
  - Hypotension [Recovered/Resolved]
  - Malaise [Recovered/Resolved]
  - Infusion related reaction [Recovered/Resolved]
  - Off label use [Recovered/Resolved]

NARRATIVE: CASE EVENT DATE: 20220429
